FAERS Safety Report 16925216 (Version 1)
Quarter: 2019Q4

REPORT INFORMATION
  Report Type: Spontaneous
  Country: GR (occurrence: GR)
  Receive Date: 20191016
  Receipt Date: 20191016
  Transmission Date: 20200122
  Serious: Yes (Other)
  Sender: FDA-Public Use
  Company Number: GR-SA-2019SA283266

PATIENT
  Age: 49 Year
  Sex: Male

DRUGS (2)
  1. SALOSPIR [Concomitant]
     Active Substance: ASPIRIN
  2. AUBAGIO [Suspect]
     Active Substance: TERIFLUNOMIDE
     Dosage: UNK
     Dates: start: 2018

REACTIONS (2)
  - Orchitis [Recovering/Resolving]
  - Epididymitis [Recovering/Resolving]

NARRATIVE: CASE EVENT DATE: 20191006
